FAERS Safety Report 5238957-1 (Version None)
Quarter: 2007Q1

REPORT INFORMATION
  Report Type: 
  Country: None (occurrence: None)
  Receive Date: 20070215
  Receipt Date: 20070206
  Transmission Date: 20070707
  Serious: Yes (Hospitalization)
  Sender: FDA-Public Use
  Company Number: FR-AMGEN-UK210468

PATIENT
  Age: 64 Year
  Sex: Female

DRUGS (10)
  1. MIMPARA [Suspect]
     Indication: DRUG USE FOR UNKNOWN INDICATION
     Route: 048
  2. ATACAND [Suspect]
     Route: 048
  3. KAYEXALATE [Suspect]
     Route: 048
  4. ZOLPIDEM TARTRATE [Suspect]
     Route: 048
  5. COUMADIN [Suspect]
  6. OROCAL [Suspect]
     Route: 048
  7. LEXOMIL [Concomitant]
  8. ORACILLINE [Concomitant]
  9. OMEPRAZOLE [Concomitant]
  10. VENOFER [Concomitant]

REACTIONS (3)
  - HYPERTENSION [None]
  - INTRAVASCULAR HAEMOLYSIS [None]
  - PROCEDURAL HYPERTENSION [None]
